FAERS Safety Report 9278440 (Version 1)
Quarter: 2013Q2

REPORT INFORMATION
  Report Type: Spontaneous
  Country: GR (occurrence: GR)
  Receive Date: 20130508
  Receipt Date: 20130508
  Transmission Date: 20140414
  Serious: Yes (Hospitalization)
  Sender: FDA-Public Use
  Company Number: GR-ASTRAZENECA-2013SE30716

PATIENT
  Age: 69 Year
  Sex: Female

DRUGS (7)
  1. BRILIQUE [Suspect]
     Indication: ACUTE CORONARY SYNDROME
     Route: 048
     Dates: start: 20130417, end: 20130427
  2. BRILIQUE [Suspect]
     Indication: ANGINA UNSTABLE
     Route: 048
     Dates: start: 20130417, end: 20130427
  3. SALOSPIR [Concomitant]
     Indication: ACUTE CORONARY SYNDROME
     Route: 048
     Dates: start: 20130417
  4. NEXIUM [Concomitant]
     Indication: GASTRITIS PROPHYLAXIS
     Route: 048
  5. CRESTOR [Concomitant]
     Indication: HYPERCHOLESTEROLAEMIA
     Route: 048
  6. DIOVAN [Concomitant]
     Indication: HYPERTENSION
     Route: 048
  7. CARVEPEN [Concomitant]
     Indication: HYPERTENSION
     Route: 048

REACTIONS (2)
  - Haematocrit decreased [Not Recovered/Not Resolved]
  - Haematochezia [Recovered/Resolved]
